FAERS Safety Report 20489886 (Version 1)
Quarter: 2022Q1

REPORT INFORMATION
  Report Type: Spontaneous
  Country: US (occurrence: US)
  Receive Date: 20220218
  Receipt Date: 20220218
  Transmission Date: 20220423
  Serious: Yes (Other)
  Sender: FDA-Public Use
  Company Number: US-GLAXOSMITHKLINE- US2022GSK029679

PATIENT
  Sex: Female

DRUGS (6)
  1. ZANTAC [Suspect]
     Active Substance: RANITIDINE HYDROCHLORIDE
     Indication: Dyspepsia
     Dosage: UNK, CLAIMANT WOULD USE DAILY WHEN ISSUES WOULD ARISE, BUT WOULD SOMETIMES GO 3-6 MONTHS OF NON-USE
     Route: 065
     Dates: start: 198601, end: 201801
  2. ZANTAC [Suspect]
     Active Substance: RANITIDINE HYDROCHLORIDE
     Indication: Dyspepsia
     Dosage: UNK, CLAIMANT WOULD USE DAILY WHEN ISSUES WOULD ARISE, BUT WOULD SOMETIMES GO 3-6 MONTHS OF NON-USE
     Route: 065
     Dates: start: 198601, end: 201801
  3. RANITIDINE [Suspect]
     Active Substance: RANITIDINE
     Indication: Dyspepsia
     Dosage: UNK, CLAIMANT WOULD USE DAILY WHEN ISSUES WOULD ARISE, BUT WOULD SOMETIMES GO 3-6 MONTHS OF NON-USE
     Route: 065
     Dates: start: 198601, end: 201801
  4. RANITIDINE [Suspect]
     Active Substance: RANITIDINE
     Dosage: UNK, PERIODS OF NON-USE (AT LEAST 3 MONTHS WITHOUT USE)
     Route: 065
     Dates: start: 198601, end: 201801
  5. RANITIDINE [Suspect]
     Active Substance: RANITIDINE
     Indication: Dyspepsia
     Dosage: UNK,CLAIMANT WOULD USE DAILY WHEN ISSUES WOULD ARISE, BUT WOULD SOMETIMES GO 3-6 MONTHS OF NON-USE
     Route: 065
     Dates: start: 198601, end: 201801
  6. RANITIDINE [Suspect]
     Active Substance: RANITIDINE
     Dosage: UNK,PERIODS OF NON-USE (AT LEAST 3 MONTHS WITHOUT USE)
     Route: 065
     Dates: start: 198601, end: 201801

REACTIONS (1)
  - Breast cancer [Unknown]
